FAERS Safety Report 6369584-0 (Version None)
Quarter: 2009Q3

REPORT INFORMATION
  Report Type: 
  Country: None (occurrence: None)
  Receive Date: 20090923
  Receipt Date: 20090914
  Transmission Date: 20100115
  Serious: Yes (Hospitalization, Other)
  Sender: FDA-Public Use
  Company Number: PHFR2008IE01069

PATIENT
  Sex: Male

DRUGS (7)
  1. CLOZARIL [Suspect]
     Indication: SCHIZOPHRENIA
     Dosage: 350 MG DAILY
     Route: 048
     Dates: start: 19940901
  2. CLOZARIL [Suspect]
     Dosage: UNK
     Route: 048
     Dates: start: 20090415, end: 20090806
  3. CITALOPRAM HYDROBROMIDE [Concomitant]
     Indication: DEPRESSED MOOD
     Dosage: 40 MG DAILY
     Dates: start: 20060101
  4. CITALOPRAM HYDROBROMIDE [Concomitant]
     Dosage: 20 MG, QD
     Dates: start: 20090730, end: 20090804
  5. OLANZAPINE [Concomitant]
  6. CIPRAMIL [Concomitant]
  7. HYOSCINE [Concomitant]
     Dosage: 300 MCG

REACTIONS (14)
  - COLD SWEAT [None]
  - COMBINED IMMUNODEFICIENCY [None]
  - GENERAL PHYSICAL CONDITION ABNORMAL [None]
  - HEADACHE [None]
  - HYPOGAMMAGLOBULINAEMIA [None]
  - LEUKOPENIA [None]
  - LOWER RESPIRATORY TRACT INFECTION [None]
  - MENTAL DISORDER [None]
  - NASOPHARYNGITIS [None]
  - NEUTROPENIA [None]
  - PNEUMONIA [None]
  - RASH [None]
  - VOMITING [None]
  - WITHDRAWAL SYNDROME [None]
